FAERS Safety Report 20494937 (Version 2)
Quarter: 2022Q1

REPORT INFORMATION
  Report Type: Report from Study
  Country: ES (occurrence: ES)
  Receive Date: 20220221
  Receipt Date: 20220330
  Transmission Date: 20220424
  Serious: Yes (Other)
  Sender: FDA-Public Use
  Company Number: ES-SA-SAC20220216000524

PATIENT
  Sex: Male

DRUGS (1)
  1. INSULIN GLARGINE [Suspect]
     Active Substance: INSULIN GLARGINE
     Indication: Type 2 diabetes mellitus
     Route: 058

REACTIONS (4)
  - Prostate cancer [Recovering/Resolving]
  - Hyperglycaemia [Recovering/Resolving]
  - Blood glucose increased [Not Recovered/Not Resolved]
  - Product storage error [Unknown]
